FAERS Safety Report 19006936 (Version 1)
Quarter: 2021Q1

REPORT INFORMATION
  Report Type: Spontaneous
  Country: NL (occurrence: NL)
  Receive Date: 20210315
  Receipt Date: 20210315
  Transmission Date: 20210420
  Serious: Yes (Other)
  Sender: FDA-Public Use
  Company Number: NL-ROCHE-2783040

PATIENT

DRUGS (3)
  1. XELODA [Suspect]
     Active Substance: CAPECITABINE
     Indication: OESOPHAGEAL ADENOCARCINOMA
     Dosage: UNKNOWN
     Route: 065
  2. OXALIPLATIN. [Concomitant]
     Active Substance: OXALIPLATIN
     Route: 065
  3. HERCEPTIN [Suspect]
     Active Substance: TRASTUZUMAB
     Indication: OESOPHAGEAL ADENOCARCINOMA
     Dosage: UNKNOWN
     Route: 065

REACTIONS (2)
  - Oesophageal adenocarcinoma [Not Recovered/Not Resolved]
  - No adverse event [Unknown]
